FAERS Safety Report 19444636 (Version 1)
Quarter: 2021Q2

REPORT INFORMATION
  Report Type: Spontaneous
  Country: PL (occurrence: PL)
  Receive Date: 20210621
  Receipt Date: 20210621
  Transmission Date: 20210717
  Serious: Yes (Other)
  Sender: FDA-Public Use
  Company Number: PL-MYLANLABS-2021M1035698

PATIENT

DRUGS (1)
  1. IMATINIB. [Suspect]
     Active Substance: IMATINIB MESYLATE
     Indication: ACUTE LYMPHOCYTIC LEUKAEMIA
     Dosage: INTRODUCED ON DAY 15

REACTIONS (4)
  - Hepatotoxicity [Unknown]
  - Infection [Unknown]
  - Neurotoxicity [Unknown]
  - Nephropathy toxic [Unknown]
